FAERS Safety Report 18927202 (Version 1)
Quarter: 2021Q1

REPORT INFORMATION
  Report Type: Spontaneous
  Country: US (occurrence: US)
  Receive Date: 20210222
  Receipt Date: 20210222
  Transmission Date: 20210420
  Serious: Yes (Hospitalization)
  Sender: FDA-Public Use
  Company Number: None

PATIENT
  Sex: Male

DRUGS (9)
  1. ESBRIET [Suspect]
     Active Substance: PIRFENIDONE
     Indication: IDIOPATHIC PULMONARY FIBROSIS
     Route: 049
     Dates: start: 20171013
  2. LANSOPRAZOLE. [Concomitant]
     Active Substance: LANSOPRAZOLE
  3. CLONAZEPAM. [Concomitant]
     Active Substance: CLONAZEPAM
  4. IRBESARTAN. [Concomitant]
     Active Substance: IRBESARTAN
  5. SIMVASTATIN. [Concomitant]
     Active Substance: SIMVASTATIN
  6. TAMSULOSIN [Concomitant]
     Active Substance: TAMSULOSIN
  7. ALPRAZOLAM. [Concomitant]
     Active Substance: ALPRAZOLAM
  8. TADALAFIL. [Concomitant]
     Active Substance: TADALAFIL
  9. CLOPIDOGREL [Concomitant]
     Active Substance: CLOPIDOGREL BISULFATE

REACTIONS (2)
  - Product dose omission in error [None]
  - Therapy interrupted [None]
